FAERS Safety Report 17481857 (Version 1)
Quarter: 2020Q1

REPORT INFORMATION
  Report Type: Spontaneous
  Country: US (occurrence: US)
  Receive Date: 20200302
  Receipt Date: 20200302
  Transmission Date: 20200409
  Serious: Yes (Hospitalization, Other)
  Sender: FDA-Public Use
  Company Number: US-LEADING PHARMA LLC-US-2020LEALIT00026

PATIENT

DRUGS (1)
  1. FUROSEMIDE TABLETS USP [Suspect]
     Active Substance: FUROSEMIDE

REACTIONS (4)
  - Polyuria [Recovered/Resolved]
  - Hyperaldosteronism [Recovered/Resolved]
  - Blood creatinine increased [Recovered/Resolved]
  - Urine output decreased [Recovered/Resolved]
